FAERS Safety Report 5976646-6 (Version None)
Quarter: 2008Q4

REPORT INFORMATION
  Report Type: 
  Country: None (occurrence: None)
  Receive Date: 20081201
  Receipt Date: 20081201
  Transmission Date: 20090506
  Serious: No
  Sender: FDA-Public Use
  Company Number: None

PATIENT
  Age: 50 Year
  Sex: Female
  Weight: 63.5036 kg

DRUGS (2)
  1. ZELNORM [Suspect]
     Indication: GASTRIC DISORDER
     Dosage: 6 MG 2 TIMES DAILY 50
  2. ZELNORM [Suspect]
     Indication: ULCER
     Dosage: 6 MG 2 TIMES DAILY 50

REACTIONS (2)
  - ABDOMINAL DISCOMFORT [None]
  - ULCER [None]
